FAERS Safety Report 18160951 (Version 1)
Quarter: 2020Q3

REPORT INFORMATION
  Report Type: Spontaneous
  Country: US (occurrence: US)
  Receive Date: 20200818
  Receipt Date: 20200818
  Transmission Date: 20201103
  Serious: No
  Sender: FDA-Public Use
  Company Number: US-SUN PHARMACEUTICAL INDUSTRIES LTD-2020R1-240601

PATIENT
  Sex: Female

DRUGS (1)
  1. SUMATRIPTAN. [Suspect]
     Active Substance: SUMATRIPTAN
     Indication: MIGRAINE
     Dosage: UNK 4 TIMES PER MONTH
     Route: 065

REACTIONS (5)
  - Injection site hypersensitivity [Unknown]
  - Product use complaint [Unknown]
  - Product quality issue [Unknown]
  - Drug ineffective [Unknown]
  - Injection site pain [Unknown]
